FAERS Safety Report 5011995-X (Version None)
Quarter: 2006Q2

REPORT INFORMATION
  Report Type: 
  Country: None (occurrence: None)
  Receive Date: 20060524
  Receipt Date: 20060509
  Transmission Date: 20061013
  Serious: Yes (Hospitalization)
  Sender: FDA-Public Use
  Company Number: GXKR2006NL02579

PATIENT
  Age: 77 Year
  Sex: Male

DRUGS (5)
  1. CIPROFLOXACIN [Suspect]
     Indication: KNEE ARTHROPLASTY
     Dosage: 750 MG, BID
  2. AMOXICILLIN TRIHYDRATE [Suspect]
     Dosage: 500 MG, TID
  3. DIPYRIDAMOLE [Concomitant]
  4. LISINOPRIL [Concomitant]
  5. FENOTEROL/IPRATROPIUM (FENOTEROL, IPRATROPIUM) [Concomitant]

REACTIONS (11)
  - ABDOMINAL PAIN [None]
  - ANURIA [None]
  - ASCITES [None]
  - DEHYDRATION [None]
  - DIALYSIS [None]
  - DIARRHOEA [None]
  - HYPOTENSION [None]
  - LUNG INFILTRATION [None]
  - MALAISE [None]
  - NEPHRITIS INTERSTITIAL [None]
  - RENAL FAILURE [None]
